FAERS Safety Report 5763947-X (Version None)
Quarter: 2008Q2

REPORT INFORMATION
  Report Type: 
  Country: None (occurrence: None)
  Receive Date: 20080606
  Receipt Date: 20080606
  Transmission Date: 20081010
  Serious: Yes (Life-Threatening)
  Sender: FDA-Public Use
  Company Number: None

PATIENT
  Age: 9 Year
  Sex: Female
  Weight: 34.4734 kg

DRUGS (2)
  1. REGLAN [Suspect]
     Indication: CSF PRESSURE INCREASED
     Dosage: 10 MG EVERY 12 HOURS PO
     Route: 048
     Dates: start: 20080602, end: 20080603
  2. REGLAN [Suspect]
     Indication: NAUSEA
     Dosage: 10 MG EVERY 12 HOURS PO
     Route: 048
     Dates: start: 20080602, end: 20080603

REACTIONS (2)
  - CONVULSION [None]
  - DYSTONIA [None]
